FAERS Safety Report 10024674 (Version 2)
Quarter: 2014Q2

REPORT INFORMATION
  Report Type: Spontaneous
  Country: US (occurrence: US)
  Receive Date: 20140320
  Receipt Date: 20140529
  Transmission Date: 20141212
  Serious: Yes (Hospitalization)
  Sender: FDA-Public Use
  Company Number: US-BAYER-2014-038671

PATIENT
  Age: 86 Year
  Sex: Male
  Weight: 95.69 kg

DRUGS (4)
  1. XOFIGO [Suspect]
     Indication: PROSTATE CANCER METASTATIC
     Dosage: 135UCI
     Route: 042
     Dates: start: 20140304
  2. TRELSTAR [Concomitant]
     Dosage: UNK
     Dates: end: 20140226
  3. XGEVA [Concomitant]
     Dosage: UNK
     Dates: end: 20140307
  4. SPIRONOLACTONE AND HYDROCHLOROTHIAZIDE [Concomitant]
     Dosage: 25 MG, QD
     Route: 048
     Dates: start: 20111227

REACTIONS (11)
  - Oedema peripheral [None]
  - Oedema peripheral [None]
  - Hyponatraemia [None]
  - Hypochloraemia [None]
  - Cellulitis [None]
  - Pneumonia [None]
  - Asthenia [None]
  - Nausea [None]
  - Vomiting [None]
  - Speech disorder [None]
  - Gait disturbance [None]
